FAERS Safety Report 14975109 (Version 1)
Quarter: 2018Q2

REPORT INFORMATION
  Report Type: Spontaneous
  Country: US (occurrence: US)
  Receive Date: 20180515
  Receipt Date: 20180515
  Transmission Date: 20180711
  Serious: Yes (Other)
  Sender: FDA-Public Use
  Company Number: None

PATIENT
  Age: 52 Year
  Sex: Female
  Weight: 78.6 kg

DRUGS (5)
  1. DEXAMETHASONE. [Concomitant]
     Active Substance: DEXAMETHASONE
     Dates: start: 20180514, end: 20180514
  2. TYLENOL [Concomitant]
     Active Substance: ACETAMINOPHEN
     Dates: start: 20180514, end: 20180514
  3. LORATADINE. [Concomitant]
     Active Substance: LORATADINE
  4. ADCETRIS [Suspect]
     Active Substance: BRENTUXIMAB VEDOTIN
     Indication: HODGKIN^S DISEASE
     Dosage: EVERY 21 DAYS
     Route: 041
     Dates: start: 20180423, end: 20180514
  5. DIPHENHYDRAMINE. [Concomitant]
     Active Substance: DIPHENHYDRAMINE
     Dates: start: 20180514, end: 20180514

REACTIONS (4)
  - Erythema [None]
  - Swollen tongue [None]
  - Dyspnoea [None]
  - Chest discomfort [None]

NARRATIVE: CASE EVENT DATE: 20180514
